FAERS Safety Report 9902839 (Version 1)
Quarter: 2014Q1

REPORT INFORMATION
  Report Type: Spontaneous
  Country: GB (occurrence: GB)
  Receive Date: 20140217
  Receipt Date: 20140217
  Transmission Date: 20141002
  Serious: Yes (Life-Threatening, Hospitalization, Other)
  Sender: FDA-Public Use
  Company Number: PHHY2014GB013571

PATIENT
  Age: 31 Year
  Sex: Female

DRUGS (11)
  1. MIRTAZAPINE [Suspect]
     Dosage: 30 MG, QD
     Route: 048
  2. FENTANYL [Concomitant]
     Dosage: 50 UG, QH
     Route: 062
  3. LANSOPRAZOLE [Concomitant]
     Dosage: 30 MG, QD
     Route: 048
  4. FERROUS FUMARATE [Concomitant]
     Dosage: 280 MG, BID
     Route: 048
  5. NYSTATIN [Concomitant]
     Dosage: 1 ML, QID
     Route: 002
  6. FLUCONAZOLE [Concomitant]
     Dosage: 50 MG, QD
     Route: 048
  7. CYCLIZINE [Concomitant]
     Dosage: 50 MG, TID
     Route: 040
  8. PARACETAMOL [Concomitant]
     Dosage: 1 G, QID
     Route: 048
  9. NORETHISTERONE [Concomitant]
     Dosage: 5 MG, TID
     Route: 048
  10. PREDNISOLONE [Concomitant]
     Dosage: 15 MG, QD
     Route: 048
  11. ORAMORPH [Concomitant]
     Dosage: 2.5 MG, Q2H
     Route: 048

REACTIONS (2)
  - Crohn^s disease [Unknown]
  - Pancytopenia [Recovered/Resolved]
